FAERS Safety Report 26173594 (Version 1)
Quarter: 2025Q4

REPORT INFORMATION
  Report Type: Spontaneous
  Country: US (occurrence: US)
  Receive Date: 20251218
  Receipt Date: 20251218
  Transmission Date: 20260118
  Serious: No
  Sender: SANOFI AVENTIS
  Company Number: US-SA-2025SA377015

PATIENT
  Age: 76 Year

DRUGS (1)
  1. DUPIXENT [Suspect]
     Active Substance: DUPILUMAB
     Route: 065

REACTIONS (6)
  - Pain [Unknown]
  - Haemorrhage [Unknown]
  - Hypertension [Unknown]
  - Insomnia [Unknown]
  - Fatigue [Unknown]
  - Pruritus [Unknown]
